FAERS Safety Report 11797382 (Version 3)
Quarter: 2016Q1

REPORT INFORMATION
  Report Type: Other
  Country: IT (occurrence: IT)
  Receive Date: 20151203
  Receipt Date: 20160111
  Transmission Date: 20160525
  Serious: Yes (Other)
  Sender: FDA-Public Use
  Company Number: IT-MYLANLABS-2015M1042393

PATIENT

DRUGS (20)
  1. SOTALOL. [Suspect]
     Active Substance: SOTALOL
     Indication: PRODUCT USED FOR UNKNOWN INDICATION
     Dosage: 120 MG, UNK
     Route: 048
  2. ALLOPURINOL. [Suspect]
     Active Substance: ALLOPURINOL
     Dosage: 600 MG, TOTAL
     Route: 048
     Dates: start: 20151102
  3. KANRENOL [Suspect]
     Active Substance: CANRENOATE POTASSIUM
     Indication: PRODUCT USED FOR UNKNOWN INDICATION
     Dosage: 25 MG/KG, UNK
     Route: 048
  4. PANTOPRAZOLE [Suspect]
     Active Substance: PANTOPRAZOLE SODIUM
     Dosage: 40 MG, TOTAL
     Route: 048
     Dates: start: 20151102
  5. ALLOPURINOL. [Suspect]
     Active Substance: ALLOPURINOL
     Indication: PRODUCT USED FOR UNKNOWN INDICATION
     Dosage: 300 MG, UNK
     Route: 048
  6. KANRENOL [Suspect]
     Active Substance: CANRENOATE POTASSIUM
     Dosage: 50 MG, TOTAL
     Route: 048
     Dates: start: 20151102
  7. CYMBALTA [Suspect]
     Active Substance: DULOXETINE HYDROCHLORIDE
     Indication: PRODUCT USED FOR UNKNOWN INDICATION
     Dosage: 60 MG, UNK
     Route: 048
  8. CYMBALTA [Suspect]
     Active Substance: DULOXETINE HYDROCHLORIDE
     Dosage: 120 MG, TOTAL
     Route: 048
     Dates: start: 20151102
  9. GLICLAZIDE [Suspect]
     Active Substance: GLICLAZIDE
     Dosage: 120 MG, TOTAL
     Route: 048
     Dates: start: 20151102
  10. RIVASTIGMINE. [Suspect]
     Active Substance: RIVASTIGMINE
     Dosage: 24 MG, TOTAL
     Route: 048
     Dates: start: 20151102
  11. NORVASC [Suspect]
     Active Substance: AMLODIPINE BESYLATE
     Indication: PRODUCT USED FOR UNKNOWN INDICATION
     Dosage: 5 MG, UNK
     Route: 048
  12. FUROSEMIDE. [Suspect]
     Active Substance: FUROSEMIDE
     Dosage: 50 MG, TOTAL
     Route: 048
     Dates: start: 20151102
  13. PANTOPRAZOLE [Suspect]
     Active Substance: PANTOPRAZOLE SODIUM
     Indication: PRODUCT USED FOR UNKNOWN INDICATION
     Dosage: 20 MG, UNK
     Route: 048
  14. EBIXA [Suspect]
     Active Substance: MEMANTINE HYDROCHLORIDE
     Indication: PRODUCT USED FOR UNKNOWN INDICATION
     Dosage: 10 MG, UNK
     Route: 048
  15. SOTALOL. [Suspect]
     Active Substance: SOTALOL
     Dosage: 240 MG, TOTAL
     Route: 048
     Dates: start: 20151102
  16. EBIXA [Suspect]
     Active Substance: MEMANTINE HYDROCHLORIDE
     Dosage: 20 MG, TOTAL
     Route: 048
     Dates: start: 20151102
  17. RIVASTIGMINE. [Suspect]
     Active Substance: RIVASTIGMINE
     Indication: PRODUCT USED FOR UNKNOWN INDICATION
     Dosage: 12 MG, UNK
     Route: 048
  18. NORVASC [Suspect]
     Active Substance: AMLODIPINE BESYLATE
     Dosage: 10 MG, TOTAL
     Route: 048
     Dates: start: 20151102
  19. GLICLAZIDE [Suspect]
     Active Substance: GLICLAZIDE
     Indication: PRODUCT USED FOR UNKNOWN INDICATION
     Dosage: 60 MG, UNK
     Route: 048
  20. FUROSEMIDE. [Suspect]
     Active Substance: FUROSEMIDE
     Indication: PRODUCT USED FOR UNKNOWN INDICATION
     Dosage: 25 MG, UNK
     Route: 048

REACTIONS (3)
  - Medication error [Recovering/Resolving]
  - Malaise [Recovering/Resolving]
  - Vomiting [Recovering/Resolving]

NARRATIVE: CASE EVENT DATE: 20151102
